FAERS Safety Report 6578210-7 (Version None)
Quarter: 2010Q1

REPORT INFORMATION
  Report Type: 
  Country: None (occurrence: None)
  Receive Date: 20100211
  Receipt Date: 20100203
  Transmission Date: 20100710
  Serious: Yes (Other)
  Sender: FDA-Public Use
  Company Number: US-RB-027427-09

PATIENT
  Age: 44 Year
  Sex: Male

DRUGS (1)
  1. SUBOXONE [Suspect]
     Indication: DRUG USE FOR UNKNOWN INDICATION
     Dosage: DOSING DETAILS UNKNOWN
     Route: 065

REACTIONS (15)
  - ASTHENIA [None]
  - BACK PAIN [None]
  - DEPRESSION [None]
  - DIARRHOEA [None]
  - GASTROENTERITIS VIRAL [None]
  - HEADACHE [None]
  - INTERVERTEBRAL DISC PROTRUSION [None]
  - MIGRAINE [None]
  - MUSCLE SPASMS [None]
  - MUSCULOSKELETAL PAIN [None]
  - NECK PAIN [None]
  - RASH [None]
  - SENSORY LOSS [None]
  - SLEEP DISORDER [None]
  - VOMITING [None]
